FAERS Safety Report 10427085 (Version 1)
Quarter: 2014Q3

REPORT INFORMATION
  Report Type: Spontaneous
  Country: US (occurrence: US)
  Receive Date: 20140903
  Receipt Date: 20140903
  Transmission Date: 20150326
  Serious: No
  Sender: FDA-Public Use
  Company Number: US-BANPHARM-20142007

PATIENT
  Age: 24 Year
  Sex: Male
  Weight: 77.11 kg

DRUGS (4)
  1. MULTIVITAMIN [Concomitant]
     Active Substance: VITAMINS
     Dosage: 1 DF, QD,
  2. PROTEIN SUPPLEMENT [Concomitant]
     Active Substance: PROTEIN
     Dosage: 1 DF, QD,
  3. FISH OIL [Concomitant]
     Active Substance: FISH OIL
     Dosage: 1 DF, QD,
  4. ZYRTEC [Suspect]
     Active Substance: CETIRIZINE HYDROCHLORIDE
     Indication: MULTIPLE ALLERGIES
     Dosage: 1 DF, QD,
     Route: 048
     Dates: start: 20131227, end: 20140101

REACTIONS (1)
  - Drug ineffective [Unknown]
